FAERS Safety Report 23382004 (Version 1)
Quarter: 2024Q1

REPORT INFORMATION
  Report Type: Spontaneous
  Country: AU (occurrence: AU)
  Receive Date: 20240109
  Receipt Date: 20240109
  Transmission Date: 20240410
  Serious: Yes (Other)
  Sender: FDA-Public Use
  Company Number: AU-EXELTIS PHARMACEUTICAL HOLDING, S.L.-2304AU02964

PATIENT
  Age: 44 Year
  Sex: Female

DRUGS (2)
  1. DROSPIRENONE [Suspect]
     Active Substance: DROSPIRENONE
     Indication: Endometriosis
     Dosage: UNK
     Route: 048
  2. DROSPIRENONE [Suspect]
     Active Substance: DROSPIRENONE
     Indication: Hypertension

REACTIONS (3)
  - Gingival bleeding [Recovered/Resolved]
  - Gingival disorder [Recovered/Resolved]
  - Product use in unapproved indication [Unknown]
